FAERS Safety Report 6929280-5 (Version None)
Quarter: 2010Q3

REPORT INFORMATION
  Report Type: 
  Country: None (occurrence: None)
  Receive Date: 20100817
  Receipt Date: 20100624
  Transmission Date: 20110219
  Serious: No
  Sender: FDA-Public Use
  Company Number: US-ALLERGAN-1008374US

PATIENT
  Age: 60 Year
  Sex: Female

DRUGS (2)
  1. ACUVAIL [Suspect]
     Indication: PRODUCT USED FOR UNKNOWN INDICATION
  2. OMNIPRED [Suspect]
     Indication: PRODUCT USED FOR UNKNOWN INDICATION

REACTIONS (1)
  - FATIGUE [None]
